FAERS Safety Report 7310724-4 (Version None)
Quarter: 2011Q1

REPORT INFORMATION
  Report Type: 
  Country: None (occurrence: None)
  Receive Date: 20110211
  Receipt Date: 20110131
  Transmission Date: 20110831
  Serious: Yes (Hospitalization)
  Sender: FDA-Public Use
  Company Number: 026774

PATIENT
  Sex: Female
  Weight: 54 kg

DRUGS (5)
  1. CERTOLIZUMAB PEGOL [Suspect]
     Indication: CROHN'S DISEASE
     Dosage: (400 MG 1X/2 WEEKS SUBCUTANEOUS) (SUBCUTANEOUS) (SUBCUTANEOUS) (400 MG 1X/MONTH SUBCUTANEOUS) (SUBCU
     Route: 058
     Dates: start: 20091215, end: 20100515
  2. CERTOLIZUMAB PEGOL [Suspect]
     Indication: CROHN'S DISEASE
     Dosage: (400 MG 1X/2 WEEKS SUBCUTANEOUS) (SUBCUTANEOUS) (SUBCUTANEOUS) (400 MG 1X/MONTH SUBCUTANEOUS) (SUBCU
     Route: 058
     Dates: start: 20091021
  3. CERTOLIZUMAB PEGOL [Suspect]
     Indication: CROHN'S DISEASE
     Dosage: (400 MG 1X/2 WEEKS SUBCUTANEOUS) (SUBCUTANEOUS) (SUBCUTANEOUS) (400 MG 1X/MONTH SUBCUTANEOUS) (SUBCU
     Route: 058
     Dates: start: 20091130
  4. CERTOLIZUMAB PEGOL [Suspect]
     Indication: CROHN'S DISEASE
     Dosage: (400 MG 1X/2 WEEKS SUBCUTANEOUS) (SUBCUTANEOUS) (SUBCUTANEOUS) (400 MG 1X/MONTH SUBCUTANEOUS) (SUBCU
     Route: 058
     Dates: start: 20090814, end: 20090911
  5. CERTOLIZUMAB PEGOL [Suspect]
     Indication: CROHN'S DISEASE
     Dosage: (400 MG 1X/2 WEEKS SUBCUTANEOUS) (SUBCUTANEOUS) (SUBCUTANEOUS) (400 MG 1X/MONTH SUBCUTANEOUS) (SUBCU
     Route: 058
     Dates: start: 20100702

REACTIONS (1)
  - CLOSTRIDIAL INFECTION [None]
